FAERS Safety Report 7166885-3 (Version None)
Quarter: 2010Q4

REPORT INFORMATION
  Report Type: 
  Country: None (occurrence: None)
  Receive Date: 20101216
  Receipt Date: 20101210
  Transmission Date: 20110411
  Serious: Yes (Other)
  Sender: FDA-Public Use
  Company Number: FR-PFIZER INC-2010169048

PATIENT
  Age: 71 Year
  Sex: Female

DRUGS (1)
  1. FARMORUBICINE [Suspect]
     Indication: BREAST CANCER
     Dosage: 120 MG, UNK

REACTIONS (1)
  - TOXIC SKIN ERUPTION [None]
